FAERS Safety Report 6892096-2 (Version None)
Quarter: 2010Q3

REPORT INFORMATION
  Report Type: 
  Country: None (occurrence: None)
  Receive Date: 20100731
  Receipt Date: 20080126
  Transmission Date: 20110219
  Serious: No
  Sender: FDA-Public Use
  Company Number: US-PFIZER INC-2008000823

PATIENT

DRUGS (2)
  1. CAMPTOSAR [Suspect]
  2. CETUXIMAB [Suspect]

REACTIONS (1)
  - RASH [None]
